FAERS Safety Report 19544125 (Version 1)
Quarter: 2021Q3

REPORT INFORMATION
  Report Type: Report from Study
  Country: CA (occurrence: CA)
  Receive Date: 20210713
  Receipt Date: 20210713
  Transmission Date: 20211014
  Serious: Yes (Other)
  Sender: FDA-Public Use
  Company Number: CA-PFIZER INC-2021821277

PATIENT
  Sex: Female

DRUGS (13)
  1. BEVACIZUMAB. [Suspect]
     Active Substance: BEVACIZUMAB
     Indication: PLEURAL MESOTHELIOMA
     Dosage: 840 MG 1 EVERY 3 WEEKS
     Route: 042
  2. DRONABINOL. [Concomitant]
     Active Substance: DRONABINOL
  3. FENBENDAZOLE [Concomitant]
     Active Substance: FENBENDAZOLE
  4. CYANOCOBALAMIN. [Concomitant]
     Active Substance: CYANOCOBALAMIN
  5. BEVACIZUMAB. [Suspect]
     Active Substance: BEVACIZUMAB
     Dosage: 840 MG 1 EVERY 3 WEEKS
     Route: 042
  6. DILAUDID [Concomitant]
     Active Substance: HYDROMORPHONE HYDROCHLORIDE
  7. FOLIC ACID. [Concomitant]
     Active Substance: FOLIC ACID
  8. HYDROMORPH CONTIN [Concomitant]
     Active Substance: HYDROMORPHONE
  9. PREGABALIN. [Concomitant]
     Active Substance: PREGABALIN
  10. PROCHLORAZINE [Concomitant]
  11. TYLENOL [Concomitant]
     Active Substance: ACETAMINOPHEN
  12. CANNABIDIOL/DRONABINOL [Concomitant]
  13. DEXAMETHASONE. [Concomitant]
     Active Substance: DEXAMETHASONE
     Route: 065

REACTIONS (2)
  - Gastrooesophageal reflux disease [Unknown]
  - Pneumonia [Unknown]
